FAERS Safety Report 7957444-0 (Version None)
Quarter: 2011Q4

REPORT INFORMATION
  Report Type: 
  Country: None (occurrence: None)
  Receive Date: 20111130
  Receipt Date: 20111114
  Transmission Date: 20120403
  Serious: Yes (Hospitalization)
  Sender: FDA-Public Use
  Company Number: VAL_00660_2011

PATIENT
  Sex: Female

DRUGS (1)
  1. CALCITRIOL [Suspect]
     Indication: PRODUCT USED FOR UNKNOWN INDICATION
     Dosage: DF

REACTIONS (3)
  - CONFUSIONAL STATE [None]
  - SYNCOPE [None]
  - HYPERCALCAEMIA [None]
